FAERS Safety Report 24019057 (Version 4)
Quarter: 2025Q2

REPORT INFORMATION
  Report Type: Spontaneous
  Country: DE (occurrence: DE)
  Receive Date: 20240627
  Receipt Date: 20250409
  Transmission Date: 20250716
  Serious: Yes (Death, Other)
  Sender: LABORATOIRES SERB
  Company Number: DE-SERB S.A.S.-2158595

PATIENT
  Age: 20 Year
  Sex: Female

DRUGS (2)
  1. CYANOKIT [Suspect]
     Active Substance: HYDROXOCOBALAMIN
     Indication: Chemical poisoning
     Dates: start: 20230627, end: 20230627
  2. bromelain (NexoBrid) [Concomitant]
     Dates: start: 20230627, end: 20230627

REACTIONS (5)
  - Cardiac arrest [Fatal]
  - Inappropriate schedule of product administration [Unknown]
  - Rhythm idioventricular [Fatal]
  - Atrioventricular block [Fatal]
  - Lactic acidosis [Fatal]

NARRATIVE: CASE EVENT DATE: 20230628
